FAERS Safety Report 8582850-3 (Version None)
Quarter: 2012Q3

REPORT INFORMATION
  Report Type: 
  Country: None (occurrence: None)
  Receive Date: 20120809
  Receipt Date: 20120807
  Transmission Date: 20120928
  Serious: Yes (Death)
  Sender: FDA-Public Use
  Company Number: DE-ABBOTT-12P-062-0965842-00

PATIENT
  Age: 75 Year
  Sex: Female

DRUGS (7)
  1. INFLIXIMAB [Suspect]
     Indication: RHEUMATOID ARTHRITIS
     Dates: start: 20070201, end: 20070401
  2. METHOTREXATE [Concomitant]
     Indication: RHEUMATOID ARTHRITIS
     Dates: start: 20020712, end: 20030101
  3. METHOTREXATE [Concomitant]
     Dates: start: 20040116
  4. SULFASALAZINE [Concomitant]
     Indication: RHEUMATOID ARTHRITIS
     Dates: start: 20020712, end: 20040101
  5. HUMIRA [Suspect]
     Indication: RHEUMATOID ARTHRITIS
     Route: 058
     Dates: start: 20070401, end: 20070701
  6. METHOTREXATE [Concomitant]
     Dates: start: 20070713
  7. METHOTREXATE [Concomitant]
     Dates: start: 20050712, end: 20070101

REACTIONS (1)
  - DEATH [None]
